FAERS Safety Report 8255904-9 (Version None)
Quarter: 2012Q2

REPORT INFORMATION
  Report Type: 
  Country: None (occurrence: None)
  Receive Date: 20120403
  Receipt Date: 20120322
  Transmission Date: 20120825
  Serious: Yes (Other)
  Sender: FDA-Public Use
  Company Number: US-ROCHE-1038599

PATIENT
  Sex: Male

DRUGS (1)
  1. ZELBORAF [Suspect]
     Indication: PRODUCT USED FOR UNKNOWN INDICATION

REACTIONS (8)
  - PAIN IN EXTREMITY [None]
  - NAUSEA [None]
  - NEOPLASM [None]
  - DYSGEUSIA [None]
  - DECREASED APPETITE [None]
  - RASH [None]
  - PRURITUS [None]
  - FATIGUE [None]
